FAERS Safety Report 6689882-0 (Version None)
Quarter: 2010Q2

REPORT INFORMATION
  Report Type: 
  Country: None (occurrence: None)
  Receive Date: 20100421
  Receipt Date: 20100415
  Transmission Date: 20101027
  Serious: Yes (Death, Other)
  Sender: FDA-Public Use
  Company Number: US-SANOFI-AVENTIS-2010SA022782

PATIENT
  Age: 87 Year
  Sex: Male

DRUGS (1)
  1. LOVENOX [Suspect]
     Indication: ATRIAL FIBRILLATION
     Route: 065
     Dates: start: 20091218

REACTIONS (3)
  - CARDIAC ARREST [None]
  - HAEMATOMA [None]
  - OFF LABEL USE [None]
